FAERS Safety Report 7169484-2 (Version None)
Quarter: 2010Q4

REPORT INFORMATION
  Report Type: 
  Country: None (occurrence: None)
  Receive Date: 20101217
  Receipt Date: 20101207
  Transmission Date: 20110411
  Serious: Yes (Hospitalization)
  Sender: FDA-Public Use
  Company Number: US-BIOGENIDEC-2010BI043293

PATIENT
  Age: 59 Year
  Sex: Male
  Weight: 76 kg

DRUGS (4)
  1. AVONEX [Suspect]
     Indication: MULTIPLE SCLEROSIS
     Route: 030
     Dates: start: 20030304
  2. AVONEX [Suspect]
     Route: 030
     Dates: start: 19960101, end: 20030304
  3. ZYPREXA [Concomitant]
     Indication: BIPOLAR DISORDER
     Dates: end: 20101101
  4. PROZAC [Concomitant]
     Indication: BIPOLAR DISORDER
     Dates: end: 20101101

REACTIONS (15)
  - ANKLE FRACTURE [None]
  - ASTHENIA [None]
  - BALANCE DISORDER [None]
  - BIPOLAR I DISORDER [None]
  - CEREBRAL ATROPHY [None]
  - DEPRESSION [None]
  - FALL [None]
  - FEAR [None]
  - FEELING HOT [None]
  - GAIT DISTURBANCE [None]
  - HEAD INJURY [None]
  - NERVOUS SYSTEM DISORDER [None]
  - PAIN [None]
  - ROAD TRAFFIC ACCIDENT [None]
  - TREMOR [None]
